FAERS Safety Report 18981808 (Version 2)
Quarter: 2021Q1

REPORT INFORMATION
  Report Type: Spontaneous
  Country: US (occurrence: US)
  Receive Date: 20210308
  Receipt Date: 20210316
  Transmission Date: 20210420
  Serious: No
  Sender: FDA-Public Use
  Company Number: US-PFIZER INC-2021171392

PATIENT
  Age: 72 Year
  Sex: Female
  Weight: 72.3 kg

DRUGS (2)
  1. PREMARIN [Suspect]
     Active Substance: ESTROGENS, CONJUGATED
     Indication: OSTEOARTHRITIS
     Dosage: 0.625 MG, CYCLIC (TAKE DAILY FOR 21 DAYS THEN DO NOT TAKE FOR 7 DAYS)
     Route: 048
  2. CELEBREX [Suspect]
     Active Substance: CELECOXIB
     Indication: OSTEOARTHRITIS
     Dosage: 100 MG, 2X/DAY
     Route: 048

REACTIONS (6)
  - Eczema [Unknown]
  - Dermatitis contact [Unknown]
  - Psoriasis [Unknown]
  - Intentional product misuse [Unknown]
  - Pain [Unknown]
  - Off label use [Unknown]
